FAERS Safety Report 15617247 (Version 1)
Quarter: 2018Q4

REPORT INFORMATION
  Report Type: Spontaneous
  Country: US (occurrence: US)
  Receive Date: 20181114
  Receipt Date: 20181114
  Transmission Date: 20190205
  Serious: Yes (Other)
  Sender: FDA-Public Use
  Company Number: None

PATIENT
  Age: 74 Year
  Sex: Female
  Weight: 75.55 kg

DRUGS (16)
  1. CAPECITABINE. [Suspect]
     Active Substance: CAPECITABINE
     Indication: BREAST CANCER
     Route: 048
     Dates: start: 20171024, end: 20181114
  2. HCTZ [Concomitant]
     Active Substance: HYDROCHLOROTHIAZIDE
  3. PROCHLORPERAZINE. [Concomitant]
     Active Substance: PROCHLORPERAZINE
  4. ARIMIDEX [Concomitant]
     Active Substance: ANASTROZOLE
  5. ASPIRIN. [Concomitant]
     Active Substance: ASPIRIN
  6. ATENOLOL. [Concomitant]
     Active Substance: ATENOLOL
  7. MULTIVITAMIN [Concomitant]
     Active Substance: VITAMINS
  8. LORATADINE. [Concomitant]
     Active Substance: LORATADINE
  9. SIMVASATATIN [Concomitant]
  10. CAL-CARB-FORTE [Concomitant]
  11. KLOR-CON [Concomitant]
     Active Substance: POTASSIUM CHLORIDE
  12. LOSARTAN. [Concomitant]
     Active Substance: LOSARTAN
  13. ALLOPURINOL. [Concomitant]
     Active Substance: ALLOPURINOL
  14. ONDANSETRON [Concomitant]
     Active Substance: ONDANSETRON
  15. MAGNESIUM [Concomitant]
     Active Substance: MAGNESIUM
  16. VITAMIN D [Concomitant]
     Active Substance: CHOLECALCIFEROL

REACTIONS (1)
  - Disease progression [None]
